FAERS Safety Report 7364417-8 (Version None)
Quarter: 2011Q1

REPORT INFORMATION
  Report Type: 
  Country: None (occurrence: None)
  Receive Date: 20110321
  Receipt Date: 20091122
  Transmission Date: 20110831
  Serious: Yes (Death, Hospitalization, Other)
  Sender: FDA-Public Use
  Company Number: US-BAYER-200940289NA

PATIENT
  Sex: Male
  Weight: 113.38 kg

DRUGS (22)
  1. TRASYLOL [Suspect]
     Indication: CORONARY ARTERY BYPASS
     Dosage: BOLUS
     Route: 042
     Dates: start: 20050701, end: 20050701
  2. VERAPAMIL [Concomitant]
  3. FENTANYL [Concomitant]
     Dosage: 40 ML, UNK
     Route: 042
     Dates: start: 20050701
  4. VERSED [Concomitant]
     Dosage: 10 MG, UNK
     Route: 042
     Dates: start: 20050701
  5. ETOMIDATE [Concomitant]
     Dosage: 12 MG, UNK
     Route: 042
     Dates: start: 20050701, end: 20050701
  6. TRASYLOL [Suspect]
     Indication: TRICUSPID VALVE REPAIR
  7. ZYRTEC [Concomitant]
  8. LASIX [Concomitant]
     Dosage: 10 MG, UNK
     Route: 042
     Dates: start: 20050701
  9. POTASSIUM CHLORIDE [Concomitant]
  10. COUMADIN [Concomitant]
     Indication: ATRIAL FIBRILLATION
     Dosage: UNK
     Dates: start: 20030101, end: 20050626
  11. TRASYLOL [Suspect]
     Indication: ATRIAL SEPTAL DEFECT REPAIR
     Dosage: 50 ML/PER HOUR
     Route: 042
     Dates: start: 20050701, end: 20050701
  12. PROPOFOL [Concomitant]
     Dosage: UNK UNK, UNK
     Route: 042
     Dates: start: 20050701, end: 20050701
  13. PANCURONIUM BROMIDE [Concomitant]
     Dosage: UNK UNK, UNK
     Route: 042
     Dates: start: 20050701, end: 20050701
  14. TRASYLOL [Suspect]
     Indication: CARDIAC OPERATION
  15. LASIX [Concomitant]
  16. VECURONIUM BROMIDE [Concomitant]
     Dosage: UNK UNK, UNK
     Route: 042
     Dates: start: 20050701
  17. MORPHINE [Concomitant]
     Dosage: UNK UNK, UNK
     Route: 042
     Dates: start: 20050701
  18. CEFAZOLIN [Concomitant]
     Dosage: 1 G, UNK
     Route: 042
     Dates: start: 20050701, end: 20050701
  19. BACITRACIN [Concomitant]
     Dosage: 50000 U, UNK
     Route: 042
     Dates: start: 20050701, end: 20050701
  20. ALBUTEROL [Concomitant]
  21. UNCODEABLE ^UNCLASSIFIABLE^ [Concomitant]
  22. HEPARIN SODIUM [Concomitant]
     Dosage: UNK UNK, UNK
     Route: 042
     Dates: start: 20050701

REACTIONS (13)
  - RENAL IMPAIRMENT [None]
  - RENAL FAILURE [None]
  - FEAR [None]
  - PAIN [None]
  - ANHEDONIA [None]
  - STRESS [None]
  - INJURY [None]
  - MULTI-ORGAN FAILURE [None]
  - RENAL INJURY [None]
  - EMOTIONAL DISTRESS [None]
  - UNEVALUABLE EVENT [None]
  - DEATH [None]
  - ANXIETY [None]
